FAERS Safety Report 20596976 (Version 1)
Quarter: 2022Q1

REPORT INFORMATION
  Report Type: Spontaneous
  Country: US (occurrence: US)
  Receive Date: 20220315
  Receipt Date: 20220315
  Transmission Date: 20220423
  Serious: No
  Sender: FDA-Public Use
  Company Number: US-PERRIGO-21US029548

PATIENT
  Age: 60 Year
  Sex: Female
  Weight: 56.689 kg

DRUGS (9)
  1. NICOTINE POLACRILEX [Suspect]
     Active Substance: NICOTINE
     Indication: Smoking cessation therapy
     Dosage: 4 MG, Q 1.5 HOURS, PRN
     Route: 002
     Dates: start: 20211006, end: 20211011
  2. HUMIRA [Concomitant]
     Active Substance: ADALIMUMAB
     Indication: Psoriatic arthropathy
     Dosage: UNK
     Route: 065
  3. PRAVASTATIN [Concomitant]
     Active Substance: PRAVASTATIN
     Indication: Blood cholesterol increased
     Dosage: UNK
     Route: 065
  4. XANAX [Concomitant]
     Active Substance: ALPRAZOLAM
     Indication: Anxiety
     Dosage: PRN
     Route: 065
  5. TESSALON [Concomitant]
     Active Substance: BENZONATATE
     Indication: Upper-airway cough syndrome
     Dosage: UNK
     Route: 065
  6. TESSALON [Concomitant]
     Active Substance: BENZONATATE
     Indication: Hypersensitivity
  7. TESSALON [Concomitant]
     Active Substance: BENZONATATE
     Indication: Asthma
  8. DRUGS FOR OBSTRUCTIVE AIRWAY DISEASES [Concomitant]
     Indication: Asthma
     Dosage: UNK
     Route: 065
     Dates: start: 20211005
  9. FLONASE                            /00908302/ [Concomitant]
     Indication: Hypersensitivity
     Dosage: UNK
     Route: 065

REACTIONS (1)
  - Oral discomfort [Recovered/Resolved]

NARRATIVE: CASE EVENT DATE: 20211006
